FAERS Safety Report 4268133-0 (Version None)
Quarter: 2004Q1

REPORT INFORMATION
  Report Type: 
  Country: None (occurrence: None)
  Receive Date: 20040109
  Receipt Date: 20040109
  Transmission Date: 20041129
  Serious: No
  Sender: FDA-Public Use
  Company Number: None

PATIENT
  Sex: Female

DRUGS (1)
  1. PROTAMINE 10MG/ML APP [Suspect]

REACTIONS (4)
  - BRADYCARDIA [None]
  - BRONCHOSPASM [None]
  - HYPOTENSION [None]
  - OXYGEN SATURATION DECREASED [None]
